FAERS Safety Report 10990755 (Version 1)
Quarter: 2015Q1

REPORT INFORMATION
  Report Type: Spontaneous
  Country: US (occurrence: None)
  Receive Date: 20150326
  Receipt Date: 20150326
  Transmission Date: 20150721
  Serious: No
  Sender: FDA-Public Use
  Company Number: 1000073697

PATIENT
  Sex: Female

DRUGS (1)
  1. LINZESS [Suspect]
     Active Substance: LINACLOTIDE
     Indication: CONSTIPATION
     Dates: start: 201402

REACTIONS (4)
  - Drug dose omission [None]
  - Diarrhoea [None]
  - Frequent bowel movements [None]
  - Influenza like illness [None]

NARRATIVE: CASE EVENT DATE: 201402
